FAERS Safety Report 8806796 (Version 2)
Quarter: 2012Q4

REPORT INFORMATION
  Report Type: 
  Country: US (occurrence: US)
  Receive Date: 20120925
  Receipt Date: 20121001
  Transmission Date: 20130627
  Serious: Yes (Other)
  Sender: FDA-Public Use
  Company Number: US-ASTRAZENECA-2012SE71930

PATIENT
  Age: 46 Year
  Sex: Female

DRUGS (25)
  1. CRESTOR [Suspect]
     Route: 048
  2. SEROQUEL XR [Suspect]
     Route: 048
  3. FUROSEMIDE [Concomitant]
     Indication: SWELLING
     Dosage: 40 MG DAILY AND AS REQUIRED
     Route: 048
  4. HUMALOG [Concomitant]
     Dosage: 100UNLTS/1ML INJECTION INJECT AS DLRECTED PER SLIDLNG SCALE
  5. HUMULIN [Concomitant]
     Dosage: 70/30 INJECTION 15 UNITS IN AM AND 15 UNITS IN PM
     Route: 058
  6. PLAVIX [Concomitant]
     Route: 048
  7. SERTRALINE HCL [Concomitant]
     Route: 048
  8. NITROGLYCERIN [Concomitant]
     Dosage: 0.4 MG ONE TABLET UNDER TONGUE MAY REPEAT EVERY 5 MINUTES MAX 3 DOSES IN 15 MINS
     Route: 060
  9. ALBUTEROL [Concomitant]
     Dosage: 90 MCG TWO PUFFS EVERY FOUR TO SIX HOURS
     Route: 055
  10. ATORVASTATIN CALCIUM [Concomitant]
     Route: 048
  11. BUTALBITAL/ACETAMINOPHEN/CAFFEINE [Concomitant]
     Dosage: 50/325 MG EVERY FOUR HOURS AND AS REQUIRED.
     Route: 048
  12. ALPRAZOLAM [Concomitant]
     Route: 048
  13. BISOPROLOL FUMARATE [Concomitant]
     Route: 048
  14. ASPIRIN [Concomitant]
     Route: 048
  15. ENALAPRIL MALEATE [Concomitant]
     Route: 048
  16. FENOFIBRATE [Concomitant]
     Route: 048
  17. METOPROLOL TARTRATE [Concomitant]
     Route: 048
  18. PAROXETINE HCL [Concomitant]
     Route: 048
  19. DIAZEPAM [Concomitant]
     Route: 048
  20. LYRICA [Concomitant]
     Route: 048
  21. DIFLUCAN [Concomitant]
     Route: 048
  22. DIFLUCAN [Concomitant]
     Route: 048
  23. MYCOLOG [Concomitant]
     Dosage: 100,000U/1GM/O.1% CREAM APPLY THIN FLLM TO AFFECTED AREA TWO TIMES A DAY
     Route: 061
  24. TRAMADOL [Concomitant]
     Route: 048
  25. MELOXICAM [Concomitant]
     Route: 048

REACTIONS (21)
  - Coronary artery disease [Unknown]
  - Diabetes mellitus [Unknown]
  - Malaise [Unknown]
  - Generalised anxiety disorder [Unknown]
  - Migraine without aura [Unknown]
  - Essential hypertension [Unknown]
  - Back pain [Unknown]
  - Type V hyperlipidaemia [Unknown]
  - Sleep apnoea syndrome [Unknown]
  - Cervix disorder [Unknown]
  - Diabetic neuropathy [Unknown]
  - Uterine prolapse [Unknown]
  - Diabetic neuropathy [Unknown]
  - Vaginal disorder [Unknown]
  - Vulval disorder [Unknown]
  - Arthralgia [Unknown]
  - Major depression [Unknown]
  - Memory impairment [Unknown]
  - Tremor [Unknown]
  - Restless legs syndrome [Unknown]
  - Somnolence [Unknown]
